FAERS Safety Report 7415356-5 (Version None)
Quarter: 2011Q2

REPORT INFORMATION
  Report Type: 
  Country: None (occurrence: None)
  Receive Date: 20110414
  Receipt Date: 20110406
  Transmission Date: 20111010
  Serious: No
  Sender: FDA-Public Use
  Company Number: A0921538A

PATIENT
  Sex: Female

DRUGS (2)
  1. PROMACTA [Suspect]
     Dosage: 50MG PER DAY
     Dates: start: 20110318, end: 20110323
  2. CORTICOSTEROIDS [Concomitant]

REACTIONS (1)
  - NO ADVERSE EVENT [None]
